FAERS Safety Report 20855105 (Version 1)
Quarter: 2022Q2

REPORT INFORMATION
  Report Type: Report from Study
  Country: NL (occurrence: NL)
  Receive Date: 20220520
  Receipt Date: 20220520
  Transmission Date: 20220721
  Serious: Yes (Death)
  Sender: FDA-Public Use
  Company Number: NL-NOVARTISPH-NVSC2022NL116467

PATIENT
  Age: 92 Year
  Sex: Female

DRUGS (1)
  1. ACLASTA [Suspect]
     Active Substance: ZOLEDRONIC ACID
     Indication: Osteoporosis
     Dosage: 1 DOSAGE FORM PER 52 WEEKS
     Route: 042

REACTIONS (1)
  - Death [Fatal]

NARRATIVE: CASE EVENT DATE: 20220328
